FAERS Safety Report 7865496-1 (Version None)
Quarter: 2011Q4

REPORT INFORMATION
  Report Type: 
  Country: None (occurrence: None)
  Receive Date: 20111028
  Receipt Date: 20110107
  Transmission Date: 20120403
  Serious: No
  Sender: FDA-Public Use
  Company Number: US-GLAXOSMITHKLINE-A0904093A

PATIENT
  Age: 93 Year
  Sex: Female

DRUGS (7)
  1. PROBIOTIC [Concomitant]
  2. ADVAIR DISKUS 100/50 [Suspect]
     Indication: CHRONIC OBSTRUCTIVE PULMONARY DISEASE
     Dosage: 1PUFF TWICE PER DAY
     Route: 055
  3. BENICAR [Concomitant]
  4. PROZAC [Concomitant]
  5. ZOCOR [Concomitant]
  6. LANOXIN [Concomitant]
  7. ALOE [Concomitant]
     Route: 048

REACTIONS (1)
  - CANDIDIASIS [None]
